FAERS Safety Report 8848653 (Version 2)
Quarter: 2013Q1

REPORT INFORMATION
  Report Type: Spontaneous
  Country: GR (occurrence: None)
  Receive Date: 20121015
  Receipt Date: 20121031
  Transmission Date: 20140127
  Serious: Yes (Hospitalization)
  Sender: FDA-Public Use
  Company Number: GR-009762

PATIENT
  Age: 74 Year
  Sex: Male

DRUGS (6)
  1. DEGARELIX (FIRMAGON) [Suspect]
     Indication: PROSTATE CANCER
     Route: 058
     Dates: start: 20111114, end: 20111114
  2. ZYLORIC [Concomitant]
  3. CLOPIDOGREL [Concomitant]
  4. XATRAL [Concomitant]
  5. LOSAZID [Concomitant]
  6. SINGULAR [Concomitant]

REACTIONS (5)
  - Haematochezia [None]
  - Haematocrit decreased [None]
  - Haemoglobin decreased [None]
  - Gastroenteritis radiation [None]
  - Gastrointestinal disorder [None]
